FAERS Safety Report 5121431-0 (Version None)
Quarter: 2006Q4

REPORT INFORMATION
  Report Type: 
  Country: None (occurrence: None)
  Receive Date: 20061002
  Receipt Date: 20060913
  Transmission Date: 20070319
  Serious: Yes (Hospitalization, Disabling, Other)
  Sender: FDA-Public Use
  Company Number: US200609002964

PATIENT
  Age: 76 Year
  Sex: Female
  Weight: 77.1 kg

DRUGS (9)
  1. HUMULIN N [Suspect]
     Indication: DIABETES MELLITUS
     Dosage: 15 U, EACH EVENING,; 20 U, EACH EVENING
     Dates: start: 19910101, end: 20060101
  2. HUMULIN N [Suspect]
     Indication: DIABETES MELLITUS
     Dosage: 15 U, EACH EVENING,; 20 U, EACH EVENING
     Dates: end: 20060401
  3. HUMULIN R [Suspect]
     Indication: DIABETES MELLITUS
     Dosage: 2/D AS NEEDED
     Dates: start: 19910101, end: 20060401
  4. COUMADIN [Concomitant]
  5. PLAVIX [Concomitant]
  6. ALTACE [Concomitant]
  7. DIGOXIN [Concomitant]
  8. ASPIRIN [Concomitant]
  9. INSULIN (INSULIN) [Concomitant]

REACTIONS (24)
  - ACCIDENT [None]
  - ACTIVITIES OF DAILY LIVING IMPAIRED [None]
  - ANXIETY [None]
  - APPLICATION SITE BURN [None]
  - BLOOD GLUCOSE FLUCTUATION [None]
  - CONTUSION [None]
  - CORONARY ARTERY OCCLUSION [None]
  - EMOTIONAL DISTRESS [None]
  - FALL [None]
  - IMPAIRED HEALING [None]
  - INJECTION SITE BRUISING [None]
  - LOSS OF CONSCIOUSNESS [None]
  - MENOPAUSE [None]
  - NAUSEA [None]
  - NERVOUSNESS [None]
  - PAIN IN EXTREMITY [None]
  - PRURITUS [None]
  - RASH ERYTHEMATOUS [None]
  - SKIN BURNING SENSATION [None]
  - STOMACH DISCOMFORT [None]
  - THERAPEUTIC RESPONSE DECREASED [None]
  - UPPER LIMB FRACTURE [None]
  - VOMITING [None]
  - WEIGHT DECREASED [None]
